FAERS Safety Report 9492603 (Version 3)
Quarter: 2013Q3

REPORT INFORMATION
  Report Type: Report from Study
  Country: US (occurrence: US)
  Receive Date: 20130830
  Receipt Date: 20130918
  Transmission Date: 20140515
  Serious: Yes (Hospitalization, Other)
  Sender: FDA-Public Use
  Company Number: US-BAXTER-2013BAX034063

PATIENT
  Age: 47 Year
  Sex: Female

DRUGS (2)
  1. GAMMAGARD LIQUID [Suspect]
     Indication: IMMUNODEFICIENCY COMMON VARIABLE
     Route: 058
  2. GAMMAGARD LIQUID [Suspect]
     Route: 058

REACTIONS (6)
  - Cellulitis [Recovering/Resolving]
  - Joint effusion [Not Recovered/Not Resolved]
  - Fall [Recovered/Resolved]
  - Joint injury [Not Recovered/Not Resolved]
  - Pyrexia [Recovering/Resolving]
  - Joint swelling [Recovering/Resolving]
